FAERS Safety Report 7164448-7 (Version None)
Quarter: 2010Q4

REPORT INFORMATION
  Report Type: 
  Country: None (occurrence: None)
  Receive Date: 20101203
  Receipt Date: 20101117
  Transmission Date: 20110411
  Serious: Yes (Other)
  Sender: FDA-Public Use
  Company Number: JPI-P-013038

PATIENT
  Age: 38 Year
  Sex: Male
  Weight: 127.0072 kg

DRUGS (6)
  1. XYREM [Suspect]
     Indication: CATAPLEXY
     Dosage: 4.5 GM (2.25 GM, 2 IN 1 D), ORAL, 6 GM (3 GM,2 IN 1 D), ORAL
     Route: 048
     Dates: start: 20101018, end: 20100101
  2. XYREM [Suspect]
     Indication: INSOMNIA
     Dosage: 4.5 GM (2.25 GM, 2 IN 1 D), ORAL, 6 GM (3 GM,2 IN 1 D), ORAL
     Route: 048
     Dates: start: 20101018, end: 20100101
  3. LAMOTRIGINE [Concomitant]
  4. LORAZEPAM [Concomitant]
  5. PROPRANOLOL [Concomitant]
  6. BENZTROPINE MESYLATE [Concomitant]

REACTIONS (1)
  - CONVULSION [None]
